FAERS Safety Report 21889292 (Version 1)
Quarter: 2023Q1

REPORT INFORMATION
  Report Type: Spontaneous
  Country: US (occurrence: US)
  Receive Date: 20230120
  Receipt Date: 20230120
  Transmission Date: 20230418
  Serious: No
  Sender: FDA-Public Use
  Company Number: US-PCCINC-2022-PEL-000051

PATIENT

DRUGS (1)
  1. GABLOFEN [Suspect]
     Active Substance: BACLOFEN
     Indication: Product used for unknown indication
     Dosage: 298 MCG/DAY
     Route: 037

REACTIONS (2)
  - Muscle spasticity [Unknown]
  - Device infusion issue [Unknown]
